FAERS Safety Report 24679811 (Version 1)
Quarter: 2024Q4

REPORT INFORMATION
  Report Type: Spontaneous
  Country: US (occurrence: US)
  Receive Date: 20241129
  Receipt Date: 20241129
  Transmission Date: 20250115
  Serious: Yes (Death)
  Sender: MERCK
  Company Number: US-009507513-2411USA011863

PATIENT
  Age: 60 Year
  Sex: Male

DRUGS (2)
  1. KEYTRUDA [Suspect]
     Active Substance: PEMBROLIZUMAB
     Indication: Squamous cell carcinoma
  2. CARBOPLATIN;FLUOROURACIL [Concomitant]
     Indication: Squamous cell carcinoma

REACTIONS (1)
  - Drug ineffective [Fatal]
